FAERS Safety Report 22069900 (Version 1)
Quarter: 2023Q1

REPORT INFORMATION
  Report Type: Report from Study
  Country: AR (occurrence: AR)
  Receive Date: 20230307
  Receipt Date: 20230307
  Transmission Date: 20230417
  Serious: Yes (Disabling, Other)
  Sender: FDA-Public Use
  Company Number: AR-JNJFOC-20230229997

PATIENT
  Age: 46 Year
  Sex: Female

DRUGS (1)
  1. SIMPONI [Suspect]
     Active Substance: GOLIMUMAB
     Indication: Rheumatoid arthritis
     Route: 058
     Dates: start: 20200714

REACTIONS (7)
  - Pulmonary embolism [Recovering/Resolving]
  - Thrombosis [Unknown]
  - Fibromyalgia [Recovering/Resolving]
  - Diarrhoea [Recovering/Resolving]
  - Rheumatoid arthritis [Recovering/Resolving]
  - Headache [Unknown]
  - Infection parasitic [Unknown]

NARRATIVE: CASE EVENT DATE: 20220815
